FAERS Safety Report 5501860-3 (Version None)
Quarter: 2007Q4

REPORT INFORMATION
  Report Type: 
  Country: None (occurrence: None)
  Receive Date: 20071030
  Receipt Date: 20070529
  Transmission Date: 20080405
  Serious: No
  Sender: FDA-Public Use
  Company Number: A0653244A

PATIENT
  Age: 44 Year
  Sex: Male

DRUGS (5)
  1. SEREVENT [Suspect]
     Indication: DRUG USE FOR UNKNOWN INDICATION
     Dosage: 1PUFF TWICE PER DAY
     Route: 055
     Dates: start: 20070521
  2. OMEPRAZOLE [Concomitant]
  3. CELEBREX [Concomitant]
  4. SINGULAIR [Concomitant]
  5. ANTACID TAB [Concomitant]

REACTIONS (1)
  - MUSCLE SPASMS [None]
